FAERS Safety Report 7786592-3 (Version None)
Quarter: 2011Q3

REPORT INFORMATION
  Report Type: 
  Country: None (occurrence: None)
  Receive Date: 20110929
  Receipt Date: 20110916
  Transmission Date: 20111222
  Serious: Yes (Hospitalization, Other)
  Sender: FDA-Public Use
  Company Number: US-ELI_LILLY_AND_COMPANY-US201106005219

PATIENT
  Sex: Female
  Weight: 64.853 kg

DRUGS (13)
  1. DILANTIN [Concomitant]
     Dosage: 300 MG, EACH EVENING
     Dates: start: 20110501
  2. NICOTINE [Concomitant]
     Dosage: 7 MG, EACH MORNING
  3. ELAVIL [Concomitant]
  4. CYMBALTA [Suspect]
     Indication: NEURALGIA
     Dosage: UNK
     Route: 048
     Dates: start: 20060101, end: 20090101
  5. BENTYL [Concomitant]
     Dosage: 20 MG, PRN
     Dates: start: 20110601
  6. CYMBALTA [Suspect]
     Dosage: 30 MG, UNK
     Route: 048
     Dates: start: 20090101, end: 20100101
  7. CYMBALTA [Suspect]
     Dosage: 30 MG, QD
     Route: 048
     Dates: start: 20110510, end: 20110601
  8. DILANTIN [Concomitant]
     Dosage: 300 MG, EACH EVENING
     Route: 048
     Dates: end: 20110201
  9. ATIVAN [Concomitant]
     Indication: ANXIETY
     Dosage: .5 MG, PRN
     Route: 048
     Dates: start: 20110501
  10. VALIUM [Concomitant]
     Dosage: 5 MG, UNK
     Route: 048
  11. GLYCERIN [Concomitant]
  12. BENTYL [Concomitant]
     Dosage: 20 MG, TID
     Route: 048
     Dates: start: 20110529
  13. ANTIBIOTICS [Concomitant]

REACTIONS (15)
  - ABDOMINAL DISTENSION [None]
  - PERINEURIAL CYST [None]
  - DIARRHOEA [None]
  - DYSPNOEA EXERTIONAL [None]
  - FUNCTIONAL GASTROINTESTINAL DISORDER [None]
  - GASTRIC DISORDER [None]
  - CONSTIPATION [None]
  - DECREASED APPETITE [None]
  - ABDOMINAL PAIN [None]
  - WEIGHT DECREASED [None]
  - GASTRIC POLYPS [None]
  - COMPUTERISED TOMOGRAM ABNORMAL [None]
  - FLATULENCE [None]
  - FATIGUE [None]
  - BLOOD SODIUM DECREASED [None]
